FAERS Safety Report 8108874-8 (Version None)
Quarter: 2012Q1

REPORT INFORMATION
  Report Type: 
  Country: None (occurrence: None)
  Receive Date: 20120202
  Receipt Date: 20120109
  Transmission Date: 20120608
  Serious: Yes (Hospitalization)
  Sender: FDA-Public Use
  Company Number: CA-GLAXOSMITHKLINE-A0960668A

PATIENT
  Sex: Female

DRUGS (3)
  1. XELODA [Concomitant]
     Dosage: 1500MG TWICE PER DAY
  2. TYKERB [Suspect]
     Indication: BREAST CANCER METASTATIC
     Dosage: 1250MG PER DAY
     Route: 048
     Dates: start: 20120106
  3. ATASOL [Concomitant]

REACTIONS (4)
  - DIARRHOEA [None]
  - FATIGUE [None]
  - ASTHENIA [None]
  - ABNORMAL FAECES [None]
